FAERS Safety Report 24672680 (Version 1)
Quarter: 2024Q4

REPORT INFORMATION
  Report Type: Report from Study
  Country: US (occurrence: US)
  Receive Date: 20241127
  Receipt Date: 20241127
  Transmission Date: 20250114
  Serious: Yes (Other)
  Sender: ABBVIE
  Company Number: US-ABBVIE-6021581

PATIENT
  Sex: Male

DRUGS (1)
  1. SKYRIZI [Suspect]
     Active Substance: RISANKIZUMAB-RZAA
     Indication: Psoriasis
     Route: 058
     Dates: start: 20230420

REACTIONS (11)
  - Coronary artery occlusion [Unknown]
  - Dyspnoea [Recovering/Resolving]
  - Loss of consciousness [Unknown]
  - Hypertension [Unknown]
  - Hypermetabolism [Unknown]
  - Blood viscosity increased [Unknown]
  - Thrombocytosis [Unknown]
  - Arthritis [Unknown]
  - Tunnel vision [Unknown]
  - Dizziness [Unknown]
  - Weight decreased [Unknown]
